FAERS Safety Report 14226537 (Version 1)
Quarter: 2017Q4

REPORT INFORMATION
  Report Type: Spontaneous
  Country: GB (occurrence: GB)
  Receive Date: 20171127
  Receipt Date: 20171127
  Transmission Date: 20180321
  Serious: Yes (Hospitalization, Other)
  Sender: FDA-Public Use
  Company Number: GB-B. BRAUN MEDICAL INC.-2036044

PATIENT
  Age: 27 Year
  Sex: Female

DRUGS (2)
  1. ANTIEPILEPTIC [Suspect]
     Active Substance: UNSPECIFIED INGREDIENT
  2. METRONIDAZOLE. [Suspect]
     Active Substance: METRONIDAZOLE
     Indication: BACTERIAL VAGINOSIS
     Dates: start: 20160930

REACTIONS (2)
  - Status epilepticus [None]
  - Drug interaction [None]

NARRATIVE: CASE EVENT DATE: 20161002
